FAERS Safety Report 6382428-6 (Version None)
Quarter: 2009Q3

REPORT INFORMATION
  Report Type: 
  Country: None (occurrence: None)
  Receive Date: 20090930
  Receipt Date: 20090820
  Transmission Date: 20100115
  Serious: No
  Sender: FDA-Public Use
  Company Number: US-BAYER-200913671BCC

PATIENT
  Age: 82 Year
  Sex: Female
  Weight: 72 kg

DRUGS (10)
  1. ALEVE (CAPLET) [Suspect]
     Indication: ARTHRITIS
     Dosage: TOTAL DAILY DOSE: 440 MG  UNIT DOSE: 220 MG
     Route: 048
     Dates: start: 20090201, end: 20090801
  2. BENICAR [Concomitant]
     Route: 065
  3. GLIPIZIDE [Concomitant]
     Route: 065
  4. LOVASTATIN [Concomitant]
     Route: 065
  5. TRAMADOL HCL [Concomitant]
     Indication: PAIN
     Route: 065
  6. TRIAMTERENE AND HYDROCHLOROTHIAZIDE [Concomitant]
     Route: 065
  7. CALCIUM INTENSIVE CARE PLUS [Concomitant]
     Route: 065
  8. VITAMIN D [Concomitant]
     Route: 065
  9. CINNAMON [Concomitant]
     Route: 065
  10. OMEGA 3 CONCENTRATE FISH OIL [Concomitant]
     Route: 065

REACTIONS (4)
  - CONTUSION [None]
  - HAEMORRHAGIC DIATHESIS [None]
  - INCREASED TENDENCY TO BRUISE [None]
  - RASH MACULAR [None]
